FAERS Safety Report 24862692 (Version 2)
Quarter: 2025Q1

REPORT INFORMATION
  Report Type: Spontaneous
  Country: US (occurrence: US)
  Receive Date: 20250120
  Receipt Date: 20250122
  Transmission Date: 20250408
  Serious: No
  Sender: AMGEN
  Company Number: US-AMGEN-USASP2025009887

PATIENT
  Sex: Female

DRUGS (3)
  1. MVASI [Suspect]
     Active Substance: BEVACIZUMAB-AWWB
     Indication: Colon cancer
     Route: 065
     Dates: start: 20241003, end: 20241017
  2. MVASI [Suspect]
     Active Substance: BEVACIZUMAB-AWWB
     Route: 065
     Dates: start: 20241121
  3. MVASI [Suspect]
     Active Substance: BEVACIZUMAB-AWWB
     Route: 065

REACTIONS (1)
  - Blood pressure abnormal [Unknown]
